FAERS Safety Report 5849071-6 (Version None)
Quarter: 2008Q3

REPORT INFORMATION
  Report Type: 
  Country: None (occurrence: None)
  Receive Date: 20080819
  Receipt Date: 20080811
  Transmission Date: 20090109
  Serious: Yes (Other)
  Sender: FDA-Public Use
  Company Number: PHHY2008GB12198

PATIENT
  Sex: Female

DRUGS (3)
  1. TEGRETOL-XR [Suspect]
     Dosage: 600 MG, BID
  2. STEROIDS NOS [Concomitant]
  3. PHENYTOIN [Concomitant]

REACTIONS (1)
  - DYSPHAGIA [None]
